FAERS Safety Report 7484106-9 (Version None)
Quarter: 2011Q2

REPORT INFORMATION
  Report Type: 
  Country: None (occurrence: None)
  Receive Date: 20110517
  Receipt Date: 20091226
  Transmission Date: 20111010
  Serious: Yes (Other)
  Sender: FDA-Public Use
  Company Number: US-BAYER-200943333NA

PATIENT
  Age: 61 Year
  Sex: Male
  Weight: 80.4 kg

DRUGS (66)
  1. ZESTRIL [Concomitant]
     Dosage: 20/12.5 DAILY
     Route: 048
  2. INSULIN, REGULAR [INSULIN] [Concomitant]
     Dosage: TITRATED TO BLOOD SUGAR LEVELS
     Route: 042
     Dates: start: 20000608
  3. DOPAMINE HCL [Concomitant]
     Dosage: DRIP; TITRATE
     Route: 042
     Dates: start: 20000610, end: 20000610
  4. SOLU-CORTEF [Concomitant]
     Dosage: UNK
     Route: 042
     Dates: start: 20000622
  5. HEPARIN [Concomitant]
     Dosage: BOLUS
     Route: 042
     Dates: start: 20000610
  6. HEPARIN [Concomitant]
     Dosage: 10000 UNITS
     Route: 042
     Dates: start: 20000622
  7. CLINDAMYCIN [Concomitant]
     Dosage: 600 MG, Q6H
     Route: 042
     Dates: start: 20000610, end: 20000612
  8. REFLUDAN [Concomitant]
     Dosage: BOLUS FOLLOWED BY DRIP
     Route: 042
     Dates: start: 20000614
  9. PRINIVIL [Concomitant]
     Dosage: 20 MG, QD
     Route: 048
  10. COREG [Concomitant]
     Dosage: 6.25 MG, BID
     Route: 048
     Dates: end: 20000609
  11. AGGRASTAT [Concomitant]
     Indication: ANTICOAGULANT THERAPY
     Dosage: DRIP; 12.5MG/200ML AT 8ML/HR
     Route: 042
     Dates: start: 20000608, end: 20000609
  12. ZOCOR [Concomitant]
     Dosage: 80 MG, HS
     Route: 048
     Dates: start: 20000608
  13. LASIX [Concomitant]
     Dosage: 80 MG, UNK
     Route: 042
     Dates: start: 20000610
  14. KEFLEX [Concomitant]
     Dosage: 500 MG, QID
     Route: 048
     Dates: start: 20000608
  15. NITROGLYCERIN [Concomitant]
     Dosage: 1 INCH
     Route: 061
     Dates: start: 20000610
  16. NITROGLYCERIN [Concomitant]
     Dosage: 1/2 INCH EVERY 6 HOURS
     Route: 061
     Dates: start: 20000612
  17. MORPHINE [Concomitant]
     Dosage: 4 MG, UNK
     Route: 042
     Dates: start: 20000610
  18. FENTANYL [Concomitant]
     Dosage: 25 MCG
     Route: 042
     Dates: start: 20000611
  19. LEVAQUIN [Concomitant]
     Dosage: 250 MG, QD
     Route: 042
     Dates: start: 20000612, end: 20000620
  20. ZINACEF [Concomitant]
     Dosage: 1.5 G, UNK
     Route: 042
     Dates: start: 20000622
  21. ABCIXIMAB [Concomitant]
     Dosage: 19 MG, BOLUS
     Route: 042
     Dates: start: 20000622
  22. GLUCOPHAGE [Concomitant]
     Dosage: 500MG AM, 1000MG PM
     Route: 048
  23. GLUCOPHAGE [Concomitant]
     Dosage: 500MG, 1000 MG
     Route: 048
     Dates: start: 20000609
  24. COUMADIN [Concomitant]
     Dosage: 2.5MG X 5 DAYS, 5MG X 2 DAYS
     Route: 048
  25. LIPITOR [Concomitant]
     Dosage: 20 MG, QD
     Route: 048
  26. GINKGO [Concomitant]
     Route: 048
  27. ACETYLSALICYLIC ACID SRT [Concomitant]
     Dosage: 325 MG, QD
     Route: 048
     Dates: end: 20000609
  28. HEPARIN [Concomitant]
     Dosage: DRIP, UNK
     Route: 042
     Dates: start: 20000610
  29. LASIX [Concomitant]
     Dosage: 40 MG, UNK
     Route: 042
     Dates: start: 20000611
  30. LASIX [Concomitant]
     Dosage: 20 MG, BID
     Route: 042
     Dates: start: 20000612
  31. NPH INSULIN [Concomitant]
     Dosage: 13 UNITS
     Route: 058
     Dates: start: 20000611
  32. NPH INSULIN [Concomitant]
     Dosage: 20 U, EVERY PM
     Route: 058
     Dates: start: 20000615
  33. REFLUDAN [Concomitant]
     Dosage: 15ML/HR THEN HOLD FOR 2 HOURS AND DECREASE RATE TO 10ML/HR
     Route: 042
     Dates: start: 20000615, end: 20000619
  34. CEFAZOLIN [Concomitant]
     Dosage: 1 G, IN NORMOSOL 500ML, IRRIGATION
     Dates: start: 20000622
  35. SUFENTANIL [Concomitant]
     Dosage: 50, 100 MICROGRAM
     Route: 042
     Dates: start: 20000622
  36. TYLENOL W/ CODEINE NO. 3 [Concomitant]
     Dosage: UNK
     Route: 054
     Dates: start: 20000610
  37. MICRONASE [Concomitant]
     Dosage: 10 MG, BID
     Route: 048
  38. LANOXIN [Concomitant]
     Dosage: 0.25 MG, QD
     Route: 048
  39. NITROGLYCERIN [Concomitant]
     Dosage: PATCH, 0.2MG/1HR ON AM, OFF PM
     Route: 061
     Dates: start: 20000615
  40. GLYBURIDE [Concomitant]
     Dosage: 10 MG, BID, WITH MEALS
     Route: 048
     Dates: start: 20000608
  41. LASIX [Concomitant]
     Dosage: 10MG, 20MG
     Route: 042
     Dates: start: 20000609
  42. LASIX [Concomitant]
     Dosage: 20 MG, UNK
     Route: 042
     Dates: start: 20000609
  43. ABCIXIMAB [Concomitant]
     Dosage: 10 MCG/KG/MIN
     Route: 042
     Dates: start: 20000622
  44. LEVOPHED [Concomitant]
     Dosage: UNK
     Route: 042
     Dates: start: 20000622
  45. NEURONTIN [Concomitant]
     Dosage: 600 MG, TID
     Route: 048
  46. LISINOPRIL [Concomitant]
     Dosage: INCREASE TO 5MG DAILY
     Route: 048
     Dates: start: 20000615
  47. NITROGLYCERIN [Concomitant]
     Indication: MUSCULOSKELETAL PAIN
     Dosage: DRIP, TITRATE
     Route: 042
     Dates: end: 20000609
  48. NITROGLYCERIN [Concomitant]
     Dosage: DRIP; 10 MCG/HR
     Route: 042
     Dates: start: 20000610
  49. HEPARIN [Concomitant]
     Dosage: RESUME DRIP
     Route: 042
     Dates: start: 20000611
  50. LASIX [Concomitant]
     Dosage: 40MG, 80MG
     Route: 042
     Dates: start: 20000609
  51. MORPHINE [Concomitant]
     Dosage: 2 MG, UNK
     Route: 042
     Dates: start: 20000610
  52. PROPOFOL [Concomitant]
     Dosage: 16.6 ML/HR
     Route: 042
     Dates: start: 20000610
  53. NPH INSULIN [Concomitant]
     Dosage: INCREASE 20MG TWICE DAILY
     Route: 058
     Dates: start: 20000612
  54. REFLUDAN [Concomitant]
     Dosage: HOLD FOR 1 HOUR, THEN RESTART AT 6.4MG/HR; DRIP 16ML/HR
     Route: 042
     Dates: start: 20000615
  55. REFLUDAN [Concomitant]
     Dosage: 8ML/HR
     Route: 042
     Dates: start: 20000620, end: 20000621
  56. DESFLURANE [Concomitant]
     Dosage: TITRATED INHALATION
     Dates: start: 20000622
  57. SEVOFLURANE [Concomitant]
     Dosage: TITRATED IRRIGATION
     Dates: start: 20000622
  58. PRIMACOR [Concomitant]
     Dosage: 4MG FOLLOWED BY DRIP AT 0.25 MCG
     Route: 042
     Dates: start: 20000622
  59. HEPARIN [Concomitant]
     Dosage: 25000
     Route: 042
     Dates: start: 20000622
  60. DIPRIVAN [Concomitant]
     Dosage: DRIP; TITRATE
     Route: 042
     Dates: start: 20000610
  61. TRASYLOL [Suspect]
     Indication: CORONARY ARTERY BYPASS
     Dosage: UNK
     Route: 042
     Dates: start: 20000622
  62. LISINOPRIL [Concomitant]
     Dosage: 20 MG, QD
     Route: 048
  63. HEPARIN [Concomitant]
     Dosage: 700 UNITS/HOUR FOR 4 HOURS
     Route: 042
     Dates: start: 20000608, end: 20000609
  64. AGGRASTAT [Concomitant]
     Dosage: 10 ML/HR
     Route: 042
     Dates: start: 20000610
  65. INSULIN, REGULAR [INSULIN] [Concomitant]
     Dosage: TITRATED TO BLOOD SUGAR LEVELS
     Route: 058
     Dates: start: 20000608
  66. LASIX [Concomitant]
     Dosage: 20 MG, UNK
     Route: 042
     Dates: start: 20000608

REACTIONS (8)
  - RENAL INJURY [None]
  - INJURY [None]
  - RENAL FAILURE ACUTE [None]
  - PAIN [None]
  - EMOTIONAL DISTRESS [None]
  - RENAL FAILURE [None]
  - UNEVALUABLE EVENT [None]
  - ANXIETY [None]
